FAERS Safety Report 13582648 (Version 2)
Quarter: 2017Q3

REPORT INFORMATION
  Report Type: Spontaneous
  Country: ES (occurrence: ES)
  Receive Date: 20170525
  Receipt Date: 20170918
  Transmission Date: 20171127
  Serious: Yes (Other)
  Sender: FDA-Public Use
  Company Number: ES-MYLANLABS-2017M1031674

PATIENT
  Age: 42 Year
  Sex: Female

DRUGS (14)
  1. ESCITALOPRAM [Suspect]
     Active Substance: ESCITALOPRAM OXALATE
     Indication: ANTIDEPRESSANT THERAPY
  2. QUETIAPINE. [Suspect]
     Active Substance: QUETIAPINE
     Indication: AUTISM SPECTRUM DISORDER
     Dosage: 50 MG/DAY
     Route: 065
  3. OLANZAPINE. [Suspect]
     Active Substance: OLANZAPINE
     Dosage: 15 MG/DAY
     Route: 065
  4. FLUVOXAMINE [Suspect]
     Active Substance: FLUVOXAMINE
     Indication: AUTISM SPECTRUM DISORDER
     Route: 065
  5. OMEGA 3                            /01334101/ [Suspect]
     Active Substance: OMEGA-3 FATTY ACIDS
     Indication: AUTISM SPECTRUM DISORDER
     Dosage: 700 MG/DAY, THE DOSE WAS FURTHER INCREASED TO DOUBLE THE PREVIOUS DOSE
     Route: 065
     Dates: start: 201305
  6. OLANZAPINE. [Suspect]
     Active Substance: OLANZAPINE
     Indication: AUTISM SPECTRUM DISORDER
     Dosage: 10 MG/DAY, THE DOSE WAS FURTHER INCREASED TO 15 MG/DAY
     Route: 065
  7. RISPERIDONE. [Suspect]
     Active Substance: RISPERIDONE
     Indication: AUTISM SPECTRUM DISORDER
     Dosage: 3 MG/DAY
     Route: 065
  8. ESCITALOPRAM [Suspect]
     Active Substance: ESCITALOPRAM OXALATE
     Indication: AUTISM SPECTRUM DISORDER
     Dosage: INITIAL DOSE NOT STATED; LAST DOSE 5 MG/DAY WAS CONTINUED
     Route: 065
  9. CARBAMAZEPINE. [Suspect]
     Active Substance: CARBAMAZEPINE
     Indication: AUTISM SPECTRUM DISORDER
     Dosage: UP TO 1200 MG/DAY
     Route: 065
  10. MIRTAZAPINE. [Suspect]
     Active Substance: MIRTAZAPINE
     Indication: ANTIDEPRESSANT THERAPY
  11. OLANZAPINE. [Suspect]
     Active Substance: OLANZAPINE
     Dosage: 5 MG/DAY
     Route: 065
  12. OMEGA 3                            /01334101/ [Suspect]
     Active Substance: OMEGA-3 FATTY ACIDS
     Dosage: DOUBLE THE PREVIOUS DOSE OF 700 MG/DAY
     Route: 065
  13. FLUVOXAMINE [Suspect]
     Active Substance: FLUVOXAMINE
     Indication: ANTIDEPRESSANT THERAPY
  14. MIRTAZAPINE. [Suspect]
     Active Substance: MIRTAZAPINE
     Indication: AUTISM SPECTRUM DISORDER
     Dosage: 60 MG/DAY
     Route: 065

REACTIONS (3)
  - Hepatic enzyme increased [Recovering/Resolving]
  - Condition aggravated [Recovering/Resolving]
  - Autism spectrum disorder [Recovering/Resolving]
